FAERS Safety Report 7745037-X (Version None)
Quarter: 2011Q3

REPORT INFORMATION
  Report Type: 
  Country: None (occurrence: None)
  Receive Date: 20110913
  Receipt Date: 20110901
  Transmission Date: 20111222
  Serious: No
  Sender: FDA-Public Use
  Company Number: US-BIOGENIDEC-2011BI034064

PATIENT
  Age: 40 Year
  Sex: Female

DRUGS (2)
  1. XANAX [Concomitant]
     Indication: ANXIETY
  2. TYSABRI [Suspect]
     Indication: MULTIPLE SCLEROSIS
     Route: 042
     Dates: start: 20110720

REACTIONS (4)
  - BONE PAIN [None]
  - PYREXIA [None]
  - HEADACHE [None]
  - ANXIETY [None]
